FAERS Safety Report 9805270 (Version 1)
Quarter: 2014Q1

REPORT INFORMATION
  Report Type: Spontaneous
  Country: US (occurrence: US)
  Receive Date: 20140109
  Receipt Date: 20140109
  Transmission Date: 20141002
  Serious: No
  Sender: FDA-Public Use
  Company Number: US-009507513-1401USA001093

PATIENT
  Sex: Male

DRUGS (1)
  1. DORZOLAMIDE HYDROCHLORIDE (+) TIMOLOL MALEATE [Suspect]
     Indication: GLAUCOMA TRAUMATIC
     Dosage: 1 DROP TWICE A DAY
     Route: 047
     Dates: start: 2003

REACTIONS (1)
  - Drug ineffective [Recovered/Resolved]
